FAERS Safety Report 14983568 (Version 1)
Quarter: 2018Q2

REPORT INFORMATION
  Report Type: Spontaneous
  Country: US (occurrence: US)
  Receive Date: 20180517
  Receipt Date: 20180517
  Transmission Date: 20180711
  Serious: Yes (Hospitalization)
  Sender: FDA-Public Use
  Company Number: None

PATIENT
  Age: 61 Year
  Sex: Male
  Weight: 92.4 kg

DRUGS (1)
  1. DAPTOMYCIN. [Suspect]
     Active Substance: DAPTOMYCIN
     Indication: BACTERAEMIA
     Route: 040
     Dates: start: 20180425, end: 20180425

REACTIONS (6)
  - Tachypnoea [None]
  - Pulmonary congestion [None]
  - Heart rate increased [None]
  - Pallor [None]
  - Blood pressure increased [None]
  - Chills [None]

NARRATIVE: CASE EVENT DATE: 20180425
